FAERS Safety Report 11832482 (Version 1)
Quarter: 2015Q4

REPORT INFORMATION
  Report Type: Spontaneous
  Country: US (occurrence: US)
  Receive Date: 20151214
  Receipt Date: 20151214
  Transmission Date: 20160305
  Serious: No
  Sender: FDA-Public Use
  Company Number: US-PFIZER INC-2015421332

PATIENT
  Age: 63 Year
  Sex: Female

DRUGS (3)
  1. AZULFIDINE [Suspect]
     Active Substance: SULFASALAZINE
     Indication: CROHN^S DISEASE
     Dosage: 500 MG, 2X/DAY
     Route: 048
     Dates: end: 201509
  2. HUMIRA [Concomitant]
     Active Substance: ADALIMUMAB
     Indication: CROHN^S DISEASE
     Dosage: 1 INJECTION, Q2 WEEKS
  3. AZASAN [Concomitant]
     Active Substance: AZATHIOPRINE
     Indication: CROHN^S DISEASE
     Dosage: 100 MG, 2X/DAY
     Route: 048
     Dates: start: 201506

REACTIONS (1)
  - Malaise [Unknown]
